FAERS Safety Report 6047399-0 (Version None)
Quarter: 2009Q1

REPORT INFORMATION
  Report Type: 
  Country: None (occurrence: None)
  Receive Date: 20090122
  Receipt Date: 20090121
  Transmission Date: 20090719
  Serious: No
  Sender: FDA-Public Use
  Company Number: US-B.I. PHARMACEUTICALS,INC./RIDGEFIELD-2008-BP-18410BP

PATIENT
  Sex: Female

DRUGS (7)
  1. SPIRIVA [Suspect]
     Indication: EMPHYSEMA
     Dosage: 18MCG
     Route: 055
     Dates: start: 20080301
  2. COUGH SYRUP [Concomitant]
  3. NEXIUM [Concomitant]
  4. LASIX [Concomitant]
  5. POTASSIUM CHLORIDE [Concomitant]
  6. TRAZODONE HCL [Concomitant]
     Indication: SLEEP DISORDER
  7. VALIUM [Concomitant]

REACTIONS (4)
  - COUGH [None]
  - DYSPHONIA [None]
  - DYSPNOEA [None]
  - MALAISE [None]
